FAERS Safety Report 18266328 (Version 1)
Quarter: 2020Q3

REPORT INFORMATION
  Report Type: Report from Study
  Country: None (occurrence: US)
  Receive Date: 20200915
  Receipt Date: 20200915
  Transmission Date: 20201103
  Serious: Yes (Hospitalization)
  Sender: FDA-Public Use
  Company Number: US-ABBVIE-20K-163-3334988-00

PATIENT
  Age: 70 Year
  Sex: Female

DRUGS (1)
  1. HUMIRA [Suspect]
     Active Substance: ADALIMUMAB
     Indication: CROHN^S DISEASE
     Dosage: CITRATE FREE
     Route: 058

REACTIONS (11)
  - Diarrhoea [Unknown]
  - Fatigue [Unknown]
  - Gastrointestinal infection [Unknown]
  - Dehydration [Unknown]
  - Suspected COVID-19 [Unknown]
  - Nausea [Unknown]
  - Pain [Unknown]
  - Pruritus [Unknown]
  - Vomiting [Unknown]
  - Urinary tract infection [Unknown]
  - Renal function test abnormal [Unknown]

NARRATIVE: CASE EVENT DATE: 202003
